FAERS Safety Report 7163340-1 (Version None)
Quarter: 2010Q4

REPORT INFORMATION
  Report Type: 
  Country: None (occurrence: None)
  Receive Date: 20101215
  Receipt Date: 20100329
  Transmission Date: 20110411
  Serious: Yes (Other)
  Sender: FDA-Public Use
  Company Number: DE-PFIZER INC-2010039489

PATIENT
  Sex: Male

DRUGS (2)
  1. LYRICA [Suspect]
     Indication: ANXIETY
     Dosage: 500 MG (200 MG + 300 MG)/DAY
     Route: 048
     Dates: start: 20080301
  2. LYRICA [Suspect]
     Indication: DEPRESSION
     Dosage: 350 MG (75 MG+275 MG)/DAY
     Route: 048

REACTIONS (7)
  - APHASIA [None]
  - DISTURBANCE IN ATTENTION [None]
  - DIZZINESS [None]
  - ERECTILE DYSFUNCTION [None]
  - ERYTHEMA [None]
  - POST HERPETIC NEURALGIA [None]
  - SOMNOLENCE [None]
